FAERS Safety Report 14381170 (Version 3)
Quarter: 2018Q1

REPORT INFORMATION
  Report Type: Spontaneous
  Country: US (occurrence: US)
  Receive Date: 20180112
  Receipt Date: 20180126
  Transmission Date: 20180509
  Serious: Yes (Other)
  Sender: FDA-Public Use
  Company Number: US-SMITH AND NEPHEW, INC-2017SMT00600

PATIENT
  Age: 57 Year
  Sex: Male
  Weight: 109.75 kg

DRUGS (7)
  1. REGRANEX [Suspect]
     Active Substance: BECAPLERMIN
     Dosage: UNK, 1X/DAY AT 5PM LEAVING ON FOR 24 HOURS
     Route: 061
     Dates: start: 201712
  2. UNSPECIFIED BLOOD THINNER [Concomitant]
     Active Substance: UNSPECIFIED INGREDIENT
  3. JANUMET [Concomitant]
     Active Substance: METFORMIN HYDROCHLORIDE\SITAGLIPTIN PHOSPHATE
  4. METOPROLOL. [Concomitant]
     Active Substance: METOPROLOL
  5. REGRANEX [Suspect]
     Active Substance: BECAPLERMIN
     Dosage: 1X/DAY, LEAVING ON FOR 24 HOURS
  6. REGRANEX [Suspect]
     Active Substance: BECAPLERMIN
     Indication: WOUND
     Dosage: UNK, 1X/DAY AT 5PM LEAVING ON FOR 24 HOURS
     Route: 061
     Dates: start: 201703, end: 201706
  7. ASPIRIN. [Concomitant]
     Active Substance: ASPIRIN

REACTIONS (4)
  - Incorrect drug administration duration [Not Recovered/Not Resolved]
  - Expired product administered [Recovered/Resolved]
  - Cyst [Unknown]
  - Wound complication [Recovering/Resolving]

NARRATIVE: CASE EVENT DATE: 201703
